FAERS Safety Report 5278770-2 (Version None)
Quarter: 2007Q1

REPORT INFORMATION
  Report Type: 
  Country: None (occurrence: None)
  Receive Date: 20070321
  Receipt Date: 20070222
  Transmission Date: 20070707
  Serious: Yes (Hospitalization)
  Sender: FDA-Public Use
  Company Number: 237488

PATIENT
  Age: 66 Year
  Sex: Male
  Weight: 97 kg

DRUGS (6)
  1. AVASTIN [Suspect]
     Indication: COLORECTAL CANCER METASTATIC
     Dosage: 725 MG, Q3W, INTRAVENOUS
     Route: 042
     Dates: start: 20070214
  2. CAPECITABINE(CAPECITABINE) [Suspect]
     Indication: COLORECTAL CANCER METASTATIC
     Dosage: 2500 MG, D1 4/Q3W, ORAL
     Route: 048
     Dates: start: 20070214
  3. ASPIRIN [Concomitant]
  4. ANGININE (NITROGLYCERIN) [Concomitant]
  5. TEMAZEPAM [Concomitant]
  6. PANADEINE (ACETAMINOPHEN, CODEINE PHOSPHATE) [Concomitant]

REACTIONS (1)
  - CHEST PAIN [None]
